FAERS Safety Report 8354835-3 (Version None)
Quarter: 2012Q2

REPORT INFORMATION
  Report Type: 
  Country: None (occurrence: None)
  Receive Date: 20120511
  Receipt Date: 20120424
  Transmission Date: 20120825
  Serious: No
  Sender: FDA-Public Use
  Company Number: US-PFIZER INC-2012087240

PATIENT
  Sex: Female

DRUGS (5)
  1. PRISTIQ [Suspect]
     Dosage: 60 MG, DAILY
  2. PRISTIQ [Suspect]
     Dosage: 100 MG, DAILY
  3. CYMBALTA [Suspect]
     Indication: DEPRESSION
     Dosage: 60 MG, DAILY
     Dates: start: 20110401
  4. PRISTIQ [Suspect]
     Indication: DEPRESSION
     Dosage: 30 MG, DAILY
     Dates: start: 20120101
  5. LACTULOSE [Suspect]
     Indication: DYSPEPSIA
     Dosage: UNK, 4X/DAY
     Dates: end: 20120101

REACTIONS (1)
  - NO ADVERSE EVENT [None]
